FAERS Safety Report 5394606-3 (Version None)
Quarter: 2007Q3

REPORT INFORMATION
  Report Type: 
  Country: None (occurrence: None)
  Receive Date: 20070720
  Receipt Date: 20070705
  Transmission Date: 20080115
  Serious: Yes (Other)
  Sender: FDA-Public Use
  Company Number: 008387

PATIENT
  Age: 26 Year
  Sex: Female

DRUGS (6)
  1. CLARAVIS [Suspect]
     Dosage: 40 MG, BID, ORAL
     Route: 048
     Dates: start: 20060207, end: 20060813
  2. ORTHO TRI-CYCLEN LO [Suspect]
     Indication: ORAL CONTRACEPTION
     Dosage: 1 TABLET, QD, ORAL
     Route: 048
  3. CERVIDIL [Suspect]
  4. CHITOSAN (POLIGLUSAM) [Concomitant]
  5. ISOTRIM (SULFAMETHOXAZOLE, TRIMETHOPRIM) [Concomitant]
  6. VITA-PAK [Concomitant]

REACTIONS (7)
  - AMNIOCENTESIS ABNORMAL [None]
  - DRUG DOSE OMISSION [None]
  - DRUG EXPOSURE DURING PREGNANCY [None]
  - HEART RATE INCREASED [None]
  - INAPPROPRIATE SCHEDULE OF DRUG ADMINISTRATION [None]
  - PREGNANCY [None]
  - RUBELLA ANTIBODY POSITIVE [None]
